FAERS Safety Report 21690176 (Version 1)
Quarter: 2022Q4

REPORT INFORMATION
  Report Type: Spontaneous
  Country: BR (occurrence: BR)
  Receive Date: 20221206
  Receipt Date: 20221206
  Transmission Date: 20230113
  Serious: Yes (Other)
  Sender: FDA-Public Use
  Company Number: BR-ALLERGAN-2239373US

PATIENT
  Sex: Male

DRUGS (1)
  1. GATIFLOXACIN\PREDNISOLONE ACETATE [Suspect]
     Active Substance: GATIFLOXACIN\PREDNISOLONE ACETATE
     Indication: Conjunctivitis
     Dosage: ACTUAL:1 GTT, QHS, 1 DROP AT NIGHT

REACTIONS (1)
  - Retinal vascular occlusion [Unknown]
